FAERS Safety Report 5056375-6 (Version None)
Quarter: 2006Q3

REPORT INFORMATION
  Report Type: 
  Country: None (occurrence: None)
  Receive Date: 20060717
  Receipt Date: 20060223
  Transmission Date: 20061208
  Serious: Yes (Other)
  Sender: FDA-Public Use
  Company Number: 2006BH003804

PATIENT

DRUGS (2)
  1. MIDAZOLAM HCL [Suspect]
     Indication: SEDATION
     Dosage: SEE IMAGE
     Route: 042
  2. ATROPINE [Concomitant]

REACTIONS (1)
  - ATRIAL FIBRILLATION [None]
